FAERS Safety Report 4447691-7 (Version None)
Quarter: 2004Q3

REPORT INFORMATION
  Report Type: 
  Country: None (occurrence: None)
  Receive Date: 20040802
  Receipt Date: 20040420
  Transmission Date: 20050211
  Serious: No
  Sender: FDA-Public Use
  Company Number: 2004-115274-NL

PATIENT
  Age: 35 Year
  Sex: Female
  Weight: 61 kg

DRUGS (3)
  1. NUVARING [Suspect]
     Indication: CONTRACEPTION
     Dosage: DF DAILY VAGINAL
     Route: 067
     Dates: start: 20040401
  2. UNSPECIFIED ANXIOLYTIC MEDICATION [Concomitant]
  3. UNSPECIFIED ANTI-INFLAMMATORY, PAIN MEDICATION AND MUSCLE RELAXER [Concomitant]

REACTIONS (1)
  - VAGINAL CONTRACEPTIVE DEVICE EXPELLED [None]
